FAERS Safety Report 17309041 (Version 2)
Quarter: 2020Q3

REPORT INFORMATION
  Report Type: Other
  Country: US (occurrence: US)
  Receive Date: 20200123
  Receipt Date: 20200930
  Transmission Date: 20201102
  Serious: Yes (Other)
  Sender: FDA-Public Use
  Company Number: US-INTERCEPT-PM2019002283

PATIENT
  Age: 75 Year
  Sex: Female

DRUGS (2)
  1. OCALIVA [Suspect]
     Active Substance: OBETICHOLIC ACID
     Dosage: 5 MG, QD
     Route: 048
     Dates: start: 202008
  2. OCALIVA [Suspect]
     Active Substance: OBETICHOLIC ACID
     Indication: PRIMARY BILIARY CHOLANGITIS
     Dosage: 5 MG, QD
     Route: 048
     Dates: start: 201911, end: 201911

REACTIONS (5)
  - Hepatic enzyme abnormal [Unknown]
  - Therapy interrupted [Recovered/Resolved]
  - Thyroidectomy [Unknown]
  - Diarrhoea [Not Recovered/Not Resolved]
  - Abdominal pain [Recovering/Resolving]

NARRATIVE: CASE EVENT DATE: 201911
